FAERS Safety Report 7608140-0 (Version None)
Quarter: 2011Q3

REPORT INFORMATION
  Report Type: 
  Country: None (occurrence: None)
  Receive Date: 20110712
  Receipt Date: 20110603
  Transmission Date: 20111222
  Serious: No
  Sender: FDA-Public Use
  Company Number: DL2011-0452

PATIENT
  Age: 28 Year
  Sex: Female

DRUGS (2)
  1. MIFEPRISTONE (MIFEPREX) [Suspect]
     Indication: ABORTION INDUCED
     Dosage: 200 MG,ORAL
     Route: 048
     Dates: start: 20110412
  2. MISOPROSTOL [Suspect]
     Dosage: 800 MCG,VAGINAL
     Route: 067
     Dates: start: 20110413

REACTIONS (3)
  - MUSCLE SPASMS [None]
  - ABORTION INCOMPLETE [None]
  - HAEMORRHAGE [None]
